FAERS Safety Report 4663673-4 (Version None)
Quarter: 2005Q2

REPORT INFORMATION
  Report Type: 
  Country: None (occurrence: None)
  Receive Date: 20050517
  Receipt Date: 20050321
  Transmission Date: 20051028
  Serious: Yes (Other)
  Sender: FDA-Public Use
  Company Number: 2005S1001420

PATIENT
  Age: 56 Year
  Sex: Female
  Weight: 68.0396 kg

DRUGS (3)
  1. FENTANYL [Suspect]
     Indication: BONE DISORDER
     Dosage: 25 MCG/HR; Q3D; TDER
     Route: 062
     Dates: start: 20050318, end: 20050320
  2. FLUOXETINE [Concomitant]
  3. HYDROCHLORIDE [Concomitant]

REACTIONS (4)
  - CONVULSION [None]
  - PAIN [None]
  - PHARMACEUTICAL PRODUCT COMPLAINT [None]
  - THERAPEUTIC RESPONSE UNEXPECTED WITH DRUG SUBSTITUTION [None]
